FAERS Safety Report 7043760-6 (Version None)
Quarter: 2010Q4

REPORT INFORMATION
  Report Type: 
  Country: None (occurrence: None)
  Receive Date: 20101008
  Receipt Date: 20100811
  Transmission Date: 20110411
  Serious: Yes (Disabling)
  Sender: FDA-Public Use
  Company Number: 2010EU004280

PATIENT
  Age: 66 Year
  Sex: Female
  Weight: 51 kg

DRUGS (3)
  1. PROTOPIC [Suspect]
     Indication: DERMATITIS ATOPIC
     Dosage: 0.1 %, BID, TOPICAL
     Route: 061
     Dates: start: 20100415, end: 20100616
  2. MEDROXYPROGESTERONE ACETATE [Suspect]
     Indication: HORMONE REPLACEMENT THERAPY
     Dates: start: 19850101, end: 20100616
  3. MEDROXYPROGESTERONE ACETATE [Suspect]
     Indication: HORMONE REPLACEMENT THERAPY
     Dates: start: 20100801

REACTIONS (4)
  - DYSPEPSIA [None]
  - HEPATITIS TOXIC [None]
  - JAUNDICE [None]
  - NAUSEA [None]
